FAERS Safety Report 18699377 (Version 3)
Quarter: 2021Q1

REPORT INFORMATION
  Report Type: Spontaneous
  Country: US (occurrence: US)
  Receive Date: 20210104
  Receipt Date: 20210125
  Transmission Date: 20210419
  Serious: Yes (Death, Other)
  Sender: FDA-Public Use
  Company Number: US-PURDUE-USA-2020-0194919

PATIENT
  Age: 49 Year
  Sex: Male

DRUGS (8)
  1. OXYCODONE HYDROCHLORIDE (SIMILAR TO NDA 22?272) [Suspect]
     Active Substance: OXYCODONE HYDROCHLORIDE
     Indication: INJURY
     Dosage: UNK
     Route: 048
  2. TRAMADOL. [Suspect]
     Active Substance: TRAMADOL
     Indication: PRODUCT USED FOR UNKNOWN INDICATION
     Dosage: 50 MG, 1?2 TABS 4 TIMES A DAY PRN
     Route: 048
  3. HYDROMORPHONE TABLETS [Suspect]
     Active Substance: HYDROMORPHONE
     Indication: PRODUCT USED FOR UNKNOWN INDICATION
     Dosage: 4 MG, Q6H PRN
     Route: 048
  4. HYDROCODONE BITARTRATE (SIMILAR TO NDA 206627) [Suspect]
     Active Substance: HYDROCODONE BITARTRATE
     Dosage: 10/500 MG, Q4? 6H PRN
     Route: 048
  5. TRAMADOL. [Suspect]
     Active Substance: TRAMADOL
     Dosage: 50 MG, 1?2 TABS EVERY 6 HRS PRN
     Route: 048
  6. HYDROCODONE BITARTRATE (SIMILAR TO NDA 206627) [Suspect]
     Active Substance: HYDROCODONE BITARTRATE
     Indication: PAIN
     Dosage: 10/500 MG, Q4H PRN
     Route: 048
  7. HYDROCODONE BITARTRATE (SIMILAR TO NDA 206627) [Suspect]
     Active Substance: HYDROCODONE BITARTRATE
     Dosage: 10/500 MG, BID PRN
     Route: 048
  8. OXYCONTIN [Suspect]
     Active Substance: OXYCODONE HYDROCHLORIDE
     Indication: INJURY
     Dosage: 80 MG, Q12H
     Route: 048

REACTIONS (2)
  - Accidental overdose [Fatal]
  - Overdose [Unknown]

NARRATIVE: CASE EVENT DATE: 20070521
